FAERS Safety Report 5355550-0 (Version None)
Quarter: 2007Q2

REPORT INFORMATION
  Report Type: 
  Country: None (occurrence: None)
  Receive Date: 20070530
  Receipt Date: 20061207
  Transmission Date: 20071010
  Serious: Yes (Hospitalization)
  Sender: FDA-Public Use
  Company Number: US200609001591

PATIENT
  Age: 52 Year
  Sex: Female
  Weight: 74.8 kg

DRUGS (1)
  1. ZYPREXA [Suspect]
     Dates: start: 20010101, end: 20030101

REACTIONS (2)
  - DIABETES MELLITUS [None]
  - POLYDIPSIA [None]
